FAERS Safety Report 11216610 (Version 1)
Quarter: 2015Q2

REPORT INFORMATION
  Report Type: Report from Study
  Country: DE (occurrence: DE)
  Receive Date: 20150624
  Receipt Date: 20150624
  Transmission Date: 20150821
  Serious: Yes (Life-Threatening, Hospitalization)
  Sender: FDA-Public Use
  Company Number: DE-TEVA-571810GER

PATIENT
  Age: 63 Year
  Sex: Female
  Weight: 78 kg

DRUGS (9)
  1. PANTOZOL [Concomitant]
     Active Substance: PANTOPRAZOLE SODIUM
     Dosage: 40 MILLIGRAM DAILY;
     Route: 065
     Dates: start: 20150309
  2. AGOMELATINE [Concomitant]
     Active Substance: AGOMELATINE
     Dosage: 25 MILLIGRAM DAILY;
     Dates: start: 20150312
  3. CYTARABINE. [Suspect]
     Active Substance: CYTARABINE
     Dosage: LAST DOSE PRIOR TO AE 13-MAR-2015
     Route: 065
     Dates: start: 20150313, end: 20150313
  4. LORAZEPAM. [Concomitant]
     Active Substance: LORAZEPAM
     Dosage: 1 MILLIGRAM DAILY;
  5. RITUXIMAB [Suspect]
     Active Substance: RITUXIMAB
     Dosage: LAST DOSE PRIOR TO AE 9-MAR-2015
     Route: 065
     Dates: start: 20150309, end: 20150309
  6. CEFUROXIM [Concomitant]
     Active Substance: CEFUROXIME
     Dosage: 500 MILLIGRAM DAILY;
     Dates: start: 20150318
  7. CISPLATIN. [Suspect]
     Active Substance: CISPLATIN
     Dosage: LAST DOSE PRIOR TO AE 12-MAR-2015
     Route: 065
     Dates: start: 20150312, end: 20150312
  8. DEXAMETHASONE. [Suspect]
     Active Substance: DEXAMETHASONE
     Route: 065
     Dates: start: 20150312, end: 20150315
  9. TEMSIROLIMUS [Suspect]
     Active Substance: TEMSIROLIMUS
     Dosage: ON DAY 1 AND DAY 8 OF EACH CYCLE, LAST DOSE PRIOR TO AE 16-MAR-2015
     Route: 042
     Dates: start: 20150309

REACTIONS (2)
  - Mucosal inflammation [Recovered/Resolved]
  - Febrile bone marrow aplasia [Recovered/Resolved]

NARRATIVE: CASE EVENT DATE: 20150326
